FAERS Safety Report 5978013-8 (Version None)
Quarter: 2008Q4

REPORT INFORMATION
  Report Type: 
  Country: None (occurrence: None)
  Receive Date: 20081125
  Receipt Date: 20081113
  Transmission Date: 20090506
  Serious: Yes (Hospitalization)
  Sender: FDA-Public Use
  Company Number: 08P-107-0467470-00

PATIENT
  Age: 1 Day
  Sex: Male
  Weight: 2.3 kg

DRUGS (1)
  1. SYNAGIS [Suspect]
     Indication: PREMATURE BABY
     Dosage: ..5 MG/KG (15 MG/KG, 1 IN 1 M), INTRAMUSCULAR
     Route: 030
     Dates: start: 20080404, end: 20080404

REACTIONS (1)
  - THROMBOCYTHAEMIA [None]
